FAERS Safety Report 18480563 (Version 1)
Quarter: 2020Q4

REPORT INFORMATION
  Report Type: Spontaneous
  Country: US (occurrence: US)
  Receive Date: 20201109
  Receipt Date: 20201109
  Transmission Date: 20210114
  Serious: Yes (Other)
  Sender: FDA-Public Use
  Company Number: None

PATIENT
  Age: 6 Year
  Sex: Female
  Weight: 24.3 kg

DRUGS (2)
  1. MONTELUKAST SOD [Suspect]
     Active Substance: MONTELUKAST SODIUM
     Indication: MULTIPLE ALLERGIES
     Dates: start: 20190114, end: 20201030
  2. MONTELUKAST SOD [Suspect]
     Active Substance: MONTELUKAST SODIUM
     Indication: ASTHMA
     Dates: start: 20190114, end: 20201030

REACTIONS (2)
  - Aggression [None]
  - Nightmare [None]

NARRATIVE: CASE EVENT DATE: 20200301
